FAERS Safety Report 11664224 (Version 1)
Quarter: 2015Q4

REPORT INFORMATION
  Report Type: Spontaneous
  Country: US (occurrence: None)
  Receive Date: 20151026
  Receipt Date: 20151026
  Transmission Date: 20160304
  Serious: Yes (Disabling)
  Sender: FDA-Public Use
  Company Number: None

PATIENT
  Age: 59 Year
  Sex: Female
  Weight: 55.34 kg

DRUGS (12)
  1. VENTOLIN HFA [Suspect]
     Active Substance: ALBUTEROL SULFATE
     Indication: CHRONIC OBSTRUCTIVE PULMONARY DISEASE
     Dosage: 2 PUFFS?
     Route: 055
     Dates: start: 20141112, end: 20150531
  2. SPIRONOLACTONE. [Concomitant]
     Active Substance: SPIRONOLACTONE
  3. PREMARIN [Concomitant]
     Active Substance: ESTROGENS, CONJUGATED
  4. BIOTIN [Concomitant]
     Active Substance: BIOTIN
  5. MAGNESIUM [Concomitant]
     Active Substance: MAGNESIUM
  6. TIZANIDINE. [Concomitant]
     Active Substance: TIZANIDINE
  7. FOSTEUM PLUS [Concomitant]
  8. POTASSIUM [Concomitant]
     Active Substance: POTASSIUM
  9. HYDROCODONE [Concomitant]
     Active Substance: HYDROCODONE
  10. D3 [Concomitant]
     Active Substance: 25-HYDROXYCHOLECALCIFEROL, 5-TRANS-
  11. VENTOLIN HFA [Suspect]
     Active Substance: ALBUTEROL SULFATE
     Indication: SINUSITIS
     Dosage: 2 PUFFS?
     Route: 055
     Dates: start: 20141112, end: 20150531
  12. CARTIA XT [Concomitant]
     Active Substance: DILTIAZEM HYDROCHLORIDE

REACTIONS (9)
  - Chest pain [None]
  - Headache [None]
  - Bedridden [None]
  - Chronic obstructive pulmonary disease [None]
  - Heart rate irregular [None]
  - Incontinence [None]
  - Loss of consciousness [None]
  - Palpitations [None]
  - Ear infection [None]

NARRATIVE: CASE EVENT DATE: 20141112
